FAERS Safety Report 10584300 (Version 1)
Quarter: 2014Q4

REPORT INFORMATION
  Report Type: Spontaneous
  Country: US (occurrence: None)
  Receive Date: 20141113
  Receipt Date: 20141113
  Transmission Date: 20150529
  Serious: Yes (Disabling)
  Sender: FDA-Public Use
  Company Number: None

PATIENT
  Age: 69 Year
  Sex: Female
  Weight: 51.26 kg

DRUGS (2)
  1. CLINDAMYCIN [Suspect]
     Active Substance: CLINDAMYCIN\CLINDAMYCIN PHOSPHATE
     Indication: DENTAL CARE
     Dosage: 2 PILLS ONLY
     Route: 048
     Dates: start: 20140218, end: 20140218
  2. CLINDAMYCIN [Suspect]
     Active Substance: CLINDAMYCIN\CLINDAMYCIN PHOSPHATE
     Indication: INFECTION PROPHYLAXIS
     Dosage: 2 PILLS ONLY
     Route: 048
     Dates: start: 20140218, end: 20140218

REACTIONS (9)
  - Throat irritation [None]
  - Dyspepsia [None]
  - Nausea [None]
  - Oesophagitis [None]
  - Oesophageal pain [None]
  - Oropharyngeal pain [None]
  - Decreased appetite [None]
  - Weight decreased [None]
  - Dysphonia [None]

NARRATIVE: CASE EVENT DATE: 20140218
